FAERS Safety Report 6766586-7 (Version None)
Quarter: 2010Q2

REPORT INFORMATION
  Report Type: 
  Country: None (occurrence: None)
  Receive Date: 20100611
  Receipt Date: 20100602
  Transmission Date: 20101027
  Serious: Yes (Hospitalization)
  Sender: FDA-Public Use
  Company Number: PHHY2010JP36086

PATIENT
  Age: 3 Year
  Sex: Male

DRUGS (4)
  1. ZADITEN [Suspect]
     Indication: HYPERSENSITIVITY
  2. TRANSAMINE CAP [Suspect]
     Indication: HYPERSENSITIVITY
  3. ANTIBIOTICS [Suspect]
     Indication: HYPERSENSITIVITY
  4. ANTIALLERGIC AGENTS, EXCL CORTICOSTEROIDS [Suspect]
     Indication: HYPERSENSITIVITY

REACTIONS (1)
  - DRUG ERUPTION [None]
